FAERS Safety Report 10260236 (Version 1)
Quarter: 2014Q2

REPORT INFORMATION
  Report Type: Spontaneous
  Country: US (occurrence: US)
  Receive Date: 20140625
  Receipt Date: 20140625
  Transmission Date: 20141212
  Serious: No
  Sender: FDA-Public Use
  Company Number: US-SA-2014SA040298

PATIENT
  Age: 55 Year
  Sex: Female

DRUGS (9)
  1. AUBAGIO [Suspect]
     Indication: MULTIPLE SCLEROSIS
     Route: 048
     Dates: start: 20130614
  2. CYMBALTA [Concomitant]
     Indication: DEPRESSION
     Route: 048
     Dates: start: 20060101
  3. PREVACID [Concomitant]
     Indication: GASTROOESOPHAGEAL REFLUX DISEASE
     Route: 048
     Dates: start: 20100101
  4. LISINOPRIL [Concomitant]
     Indication: HYPERTENSION
     Route: 048
     Dates: start: 20050101
  5. METFORMIN [Concomitant]
     Indication: DIABETES MELLITUS
     Route: 048
     Dates: start: 20050101
  6. METOPROLOL [Concomitant]
     Indication: HEADACHE
     Route: 048
     Dates: start: 20100101
  7. SINGULAIR [Concomitant]
     Indication: ASTHMA
     Route: 048
     Dates: start: 20100101
  8. PAMELOR [Concomitant]
     Indication: HEADACHE
     Route: 048
     Dates: start: 20120101
  9. PRAMIPEXOLE DIHYDROCHLORIDE [Concomitant]
     Indication: RESTLESS LEGS SYNDROME
     Route: 048
     Dates: start: 20090101

REACTIONS (1)
  - Alopecia [Unknown]
